FAERS Safety Report 4905956-6 (Version None)
Quarter: 2006Q1

REPORT INFORMATION
  Report Type: 
  Country: None (occurrence: None)
  Receive Date: 20060206
  Receipt Date: 20060124
  Transmission Date: 20060701
  Serious: Yes (Other)
  Sender: FDA-Public Use
  Company Number: 2006012160

PATIENT
  Sex: Male
  Weight: 102.0593 kg

DRUGS (1)
  1. GLUCOTROL [Suspect]
     Indication: DIABETES MELLITUS

REACTIONS (3)
  - BACK PAIN [None]
  - CONDITION AGGRAVATED [None]
  - TREATMENT NONCOMPLIANCE [None]
